FAERS Safety Report 9220798 (Version 2)
Quarter: 2013Q2

REPORT INFORMATION
  Report Type: Spontaneous
  Country: JP (occurrence: JP)
  Receive Date: 20130409
  Receipt Date: 20130412
  Transmission Date: 20140414
  Serious: Yes (Other)
  Sender: FDA-Public Use
  Company Number: JP-PFIZER INC-2013106013

PATIENT
  Age: 64 Year
  Sex: Male

DRUGS (2)
  1. METHYLPREDNISOLONE SODIUM SUCCINATE [Suspect]
     Indication: STEROID THERAPY
     Dosage: 1 G, 1X/DAY FOR 3 DAYS
  2. PREDNISOLONE [Concomitant]
     Indication: STEROID THERAPY
     Dosage: 40 MG DAILY

REACTIONS (1)
  - Bronchopulmonary aspergillosis [Recovering/Resolving]
